FAERS Safety Report 9504246 (Version 2)
Quarter: 2013Q3

REPORT INFORMATION
  Report Type: Spontaneous
  Country: FR (occurrence: FR)
  Receive Date: 20130906
  Receipt Date: 20130925
  Transmission Date: 20140515
  Serious: Yes (Life-Threatening, Hospitalization)
  Sender: FDA-Public Use
  Company Number: FR-GLAXOSMITHKLINE-B0919357A

PATIENT
  Age: 72 Year
  Sex: Male

DRUGS (21)
  1. ZOVIRAX [Suspect]
     Indication: MUCOSAL INFLAMMATION
     Route: 065
     Dates: start: 201306
  2. TORISEL [Suspect]
     Indication: RENAL CANCER
     Dosage: 25MG WEEKLY
     Route: 042
     Dates: start: 20130531, end: 20130531
  3. TACROLIMUS [Suspect]
     Indication: PRODUCT USED FOR UNKNOWN INDICATION
     Dosage: 1MG PER DAY
     Route: 048
  4. MERONEM [Suspect]
     Indication: URINARY TRACT INFECTION
     Dosage: 1G TWICE PER DAY
     Route: 042
     Dates: start: 20130524, end: 20130613
  5. VENTOLINE [Concomitant]
  6. AMLOR [Concomitant]
  7. RAMIPRIL [Concomitant]
  8. CARDENSIEL [Concomitant]
  9. KARDEGIC [Concomitant]
  10. INEXIUM [Concomitant]
  11. ELISOR [Concomitant]
  12. SILODOSIN [Concomitant]
  13. MYFORTIC [Concomitant]
     Dates: end: 20130529
  14. TAVANIC [Concomitant]
     Dates: start: 20130513, end: 20130515
  15. ROCEPHINE [Concomitant]
     Dates: start: 20130520, end: 20130523
  16. LOXEN [Concomitant]
     Dates: start: 20130521
  17. FUROSEMID [Concomitant]
     Dates: start: 20130601, end: 20130606
  18. ACUPAN [Concomitant]
     Dates: start: 20130516, end: 20130606
  19. INVANZ [Concomitant]
     Dosage: 1G PER DAY
     Dates: start: 20130523, end: 20130524
  20. AMIKACINE [Concomitant]
     Dates: start: 20130523, end: 20130523
  21. CORTICOID [Concomitant]

REACTIONS (1)
  - Thrombotic microangiopathy [Unknown]
